FAERS Safety Report 6675163-8 (Version None)
Quarter: 2010Q2

REPORT INFORMATION
  Report Type: 
  Country: None (occurrence: None)
  Receive Date: 20100409
  Receipt Date: 20100330
  Transmission Date: 20101027
  Serious: Yes (Hospitalization)
  Sender: FDA-Public Use
  Company Number: GXKR2010GB03728

PATIENT
  Sex: Female

DRUGS (3)
  1. EPIRUBICIN (NGX) [Suspect]
     Indication: BREAST CANCER
     Dosage: UNK
     Route: 042
     Dates: start: 20100212, end: 20100212
  2. FLUOROURACIL [Suspect]
     Indication: BREAST CANCER
     Dosage: 500 MG/M2, UNK
     Route: 042
     Dates: start: 20100212, end: 20100212
  3. CYCLOPHOSPHAMIDE [Suspect]
     Indication: BREAST CANCER
     Dosage: UNK
     Route: 042
     Dates: start: 20100212, end: 20100212

REACTIONS (5)
  - DIZZINESS [None]
  - NAUSEA [None]
  - PARANEOPLASTIC SYNDROME [None]
  - TREMOR [None]
  - VOMITING [None]
